FAERS Safety Report 15703574 (Version 11)
Quarter: 2019Q2

REPORT INFORMATION
  Report Type: Report from Study
  Country: CA (occurrence: CA)
  Receive Date: 20181210
  Receipt Date: 20190613
  Transmission Date: 20190711
  Serious: Yes (Other)
  Sender: FDA-Public Use
  Company Number: CA-ROCHE-2223996

PATIENT
  Age: 75 Year
  Sex: Female
  Weight: 77.3 kg

DRUGS (23)
  1. SANDOZ ROSUVASTATIN [Concomitant]
  2. MAGNESIUM [Concomitant]
     Active Substance: MAGNESIUM
  3. ESBRIET [Suspect]
     Active Substance: PIRFENIDONE
     Route: 048
     Dates: start: 201902
  4. VALIUM [Suspect]
     Active Substance: DIAZEPAM
     Indication: MUSCLE SPASMS
     Route: 065
     Dates: start: 2008
  5. ESBRIET [Suspect]
     Active Substance: PIRFENIDONE
     Route: 048
     Dates: start: 20190213
  6. INCRUSE ELLIPTA [Concomitant]
     Active Substance: UMECLIDINIUM BROMIDE
  7. TYLENOL [Concomitant]
     Active Substance: ACETAMINOPHEN
  8. ESBRIET [Suspect]
     Active Substance: PIRFENIDONE
     Route: 048
     Dates: start: 20190502
  9. OMEPRAZOLE. [Concomitant]
     Active Substance: OMEPRAZOLE
  10. CITALOPRAM [Concomitant]
     Active Substance: CITALOPRAM HYDROBROMIDE
  11. OXYGEN. [Concomitant]
     Active Substance: OXYGEN
     Dosage: FOR 1 YEAR, 3-3.5 LPM
     Route: 065
  12. TRANDOLAPRIL. [Concomitant]
     Active Substance: TRANDOLAPRIL
  13. INSULIN [Concomitant]
     Active Substance: INSULIN NOS
     Dosage: (16 UNITS A DAY)
     Route: 065
  14. VITAMIN D3 [Concomitant]
     Active Substance: CHOLECALCIFEROL
  15. CODEINE [Concomitant]
     Active Substance: CODEINE
  16. ELAVIL [Concomitant]
     Active Substance: AMITRIPTYLINE HYDROCHLORIDE
  17. ESBRIET [Suspect]
     Active Substance: PIRFENIDONE
     Indication: IDIOPATHIC PULMONARY FIBROSIS
     Route: 048
     Dates: start: 20190213
  18. INCRUSE ELLIPTA [Suspect]
     Active Substance: UMECLIDINIUM BROMIDE
     Indication: PRODUCT USED FOR UNKNOWN INDICATION
     Dosage: DAILY
     Route: 055
     Dates: end: 201903
  19. TRANDOLAPRIL. [Concomitant]
     Active Substance: TRANDOLAPRIL
  20. ALENDRONATE SODIUM. [Concomitant]
     Active Substance: ALENDRONATE SODIUM
  21. MS CONTIN [Concomitant]
     Active Substance: MORPHINE SULFATE
  22. HYDROCHLOROTHIAZIDE. [Concomitant]
     Active Substance: HYDROCHLOROTHIAZIDE
  23. CALCIUM [Concomitant]
     Active Substance: CALCIUM

REACTIONS (20)
  - Hypoxia [Unknown]
  - Dyspnoea exertional [Unknown]
  - Productive cough [Recovering/Resolving]
  - Blood immunoglobulin G decreased [Unknown]
  - Fatigue [Recovering/Resolving]
  - Skin wrinkling [Recovering/Resolving]
  - Renal impairment [Unknown]
  - Arthralgia [Not Recovered/Not Resolved]
  - Decreased appetite [Unknown]
  - Aphonia [Unknown]
  - Productive cough [Not Recovered/Not Resolved]
  - Erythema [Recovering/Resolving]
  - Arthropathy [Unknown]
  - Erythema [Unknown]
  - Oxygen saturation decreased [Unknown]
  - Myocardial infarction [Unknown]
  - Blood potassium increased [Unknown]
  - Cystitis [Recovering/Resolving]
  - Rash [Unknown]
  - Chronic obstructive pulmonary disease [Unknown]

NARRATIVE: CASE EVENT DATE: 20180508
